FAERS Safety Report 20799012 (Version 3)
Quarter: 2022Q2

REPORT INFORMATION
  Report Type: Report from Study
  Country: DK (occurrence: DK)
  Receive Date: 20220507
  Receipt Date: 20220601
  Transmission Date: 20220721
  Serious: No
  Sender: FDA-Public Use
  Company Number: DK-AMGEN-DNKCT2022032697

PATIENT
  Age: 36 Year
  Sex: Female

DRUGS (9)
  1. ERENUMAB [Suspect]
     Active Substance: ERENUMAB
     Indication: Migraine
     Dosage: 140 MILLIGRAM, EVERY 4 WEEK
     Route: 058
     Dates: start: 20210303, end: 20210724
  2. ERENUMAB [Suspect]
     Active Substance: ERENUMAB
     Dosage: UNK
     Route: 058
  3. ACETAMINOPHEN [Concomitant]
     Active Substance: ACETAMINOPHEN
     Indication: Migraine
     Dosage: 100 MILLIGRAM, AS NECESSARY
     Route: 048
     Dates: start: 202110
  4. ZOLMITRIPTAN [Concomitant]
     Active Substance: ZOLMITRIPTAN
     Indication: Migraine
     Dosage: 2.5 MILLIGRAM, AS NECESSARY
     Route: 048
     Dates: start: 202101
  5. ELETRIPTAN [Concomitant]
     Active Substance: ELETRIPTAN
     Indication: Migraine
     Dosage: 40 MILLIGRAM, AS NECESSARY
     Route: 048
     Dates: start: 20200701
  6. ASPIRIN\CAFFEINE [Concomitant]
     Active Substance: ASPIRIN\CAFFEINE
     Indication: Migraine
     Dosage: 500 MILLIGRAM, AS NECESSARY
     Route: 048
     Dates: start: 201610
  7. ETHINYL ESTRADIOL\LEVONORGESTREL [Concomitant]
     Active Substance: ETHINYL ESTRADIOL\LEVONORGESTREL
     Indication: Contraception
     Dosage: 0.15+0.03 MICROGRAM, DAILY
     Route: 048
     Dates: start: 200809
  8. VITAMIN D [Concomitant]
     Active Substance: VITAMIN D NOS
     Indication: Vitamin D deficiency
     Dosage: UNK UNK, QD
     Route: 048
     Dates: start: 20201217
  9. ONABOTULINUMTOXINA [Concomitant]
     Active Substance: ONABOTULINUMTOXINA
     Indication: Migraine prophylaxis
     Dosage: 155 IE (1/3 MONTH)
     Route: 030
     Dates: start: 20200701, end: 20211124

REACTIONS (4)
  - Hypothyroidism [Not Recovered/Not Resolved]
  - Gestational diabetes [Not Recovered/Not Resolved]
  - Constipation [Not Recovered/Not Resolved]
  - Maternal exposure during pregnancy [Unknown]

NARRATIVE: CASE EVENT DATE: 20211101
